FAERS Safety Report 20584542 (Version 1)
Quarter: 2022Q1

REPORT INFORMATION
  Report Type: Spontaneous
  Country: IT (occurrence: IT)
  Receive Date: 20220311
  Receipt Date: 20220311
  Transmission Date: 20220424
  Serious: Yes (Other)
  Sender: FDA-Public Use
  Company Number: IT-NOVARTISPH-NVSC2022IT051599

PATIENT
  Age: 67 Year
  Sex: Male

DRUGS (4)
  1. TAFINLAR [Suspect]
     Active Substance: DABRAFENIB MESYLATE
     Indication: Product used for unknown indication
     Dosage: UNK, BID (DAILY USE,TWICE A DAY EVERY 12 HOURS (11AM TO 10PM)
     Route: 065
     Dates: start: 20210502
  2. TAFINLAR [Suspect]
     Active Substance: DABRAFENIB MESYLATE
     Dosage: UNK, BID, (1 TABLET AT 11 AND 3 TABLETS AT 23)
     Route: 065
  3. MEKINIST [Suspect]
     Active Substance: TRAMETINIB DIMETHYL SULFOXIDE
     Indication: Product used for unknown indication
     Dosage: UNK, BID, (DAILY USE,TWICE A DAY EVERY 12 HOURS (11AM TO 10PM)
     Route: 065
     Dates: start: 20210502
  4. MEKINIST [Suspect]
     Active Substance: TRAMETINIB DIMETHYL SULFOXIDE
     Dosage: UNK, QD, (AT 11 ON AN EMPTY STOMACH
     Route: 065

REACTIONS (8)
  - Nephrolithiasis [Unknown]
  - Hypertension [Unknown]
  - Pyrexia [Recovered/Resolved]
  - Pyrexia [Unknown]
  - Urticaria [Unknown]
  - Eczema [Recovering/Resolving]
  - Fatigue [Unknown]
  - Product dose omission issue [Unknown]
